FAERS Safety Report 6745019-0 (Version None)
Quarter: 2010Q2

REPORT INFORMATION
  Report Type: 
  Country: None (occurrence: None)
  Receive Date: 20100527
  Receipt Date: 20100514
  Transmission Date: 20101027
  Serious: Yes (Other)
  Sender: FDA-Public Use
  Company Number: BE-WATSON-2010-07064

PATIENT
  Sex: Female

DRUGS (1)
  1. CABERGOLINE [Suspect]
     Indication: HYPERPROLACTINAEMIA
     Dosage: UNK

REACTIONS (5)
  - ABORTION SPONTANEOUS [None]
  - ECTOPIC PREGNANCY [None]
  - OVARIAN TORSION [None]
  - PRE-ECLAMPSIA [None]
  - PREMATURE BABY [None]
